FAERS Safety Report 21323192 (Version 1)
Quarter: 2022Q3

REPORT INFORMATION
  Report Type: Spontaneous
  Country: US (occurrence: US)
  Receive Date: 20220912
  Receipt Date: 20220912
  Transmission Date: 20221027
  Serious: No
  Sender: FDA-Public Use
  Company Number: US-ELI_LILLY_AND_COMPANY-US202209003672

PATIENT
  Sex: Female

DRUGS (1)
  1. TRULICITY [Suspect]
     Active Substance: DULAGLUTIDE
     Indication: Type 2 diabetes mellitus
     Dosage: 1.5 MG, UNKNOWN
     Route: 058
     Dates: start: 2017

REACTIONS (11)
  - Weight decreased [Unknown]
  - Taste disorder [Unknown]
  - Depression [Unknown]
  - Feeling abnormal [Unknown]
  - Hot flush [Unknown]
  - Eye infection [Unknown]
  - Urinary tract infection [Unknown]
  - Feeling hot [Unknown]
  - Appetite disorder [Unknown]
  - Asthenia [Unknown]
  - Fatigue [Unknown]

NARRATIVE: CASE EVENT DATE: 20180101
